FAERS Safety Report 5012155-9 (Version None)
Quarter: 2006Q2

REPORT INFORMATION
  Report Type: 
  Country: None (occurrence: None)
  Receive Date: 20060524
  Receipt Date: 20060517
  Transmission Date: 20061013
  Serious: Yes (Other)
  Sender: FDA-Public Use
  Company Number: 2006065334

PATIENT
  Sex: Male
  Weight: 81.5 kg

DRUGS (3)
  1. DILANTIN [Suspect]
     Indication: COMPLEX PARTIAL SEIZURES
  2. NEURONTIN [Suspect]
     Indication: COMPLEX PARTIAL SEIZURES
  3. KEPPRA [Suspect]
     Indication: COMPLEX PARTIAL SEIZURES
     Dosage: 2000 MG (1000 MG, 2 IN 1 D), ORAL
     Route: 048
     Dates: start: 20040101

REACTIONS (2)
  - DRUG EFFECT DECREASED [None]
  - ERECTILE DYSFUNCTION [None]
